FAERS Safety Report 20848120 (Version 1)
Quarter: 2022Q2

REPORT INFORMATION
  Report Type: Report from Study
  Country: CN (occurrence: CN)
  Receive Date: 20220519
  Receipt Date: 20220519
  Transmission Date: 20220721
  Serious: Yes (Hospitalization, Other)
  Sender: FDA-Public Use
  Company Number: CN-ASTELLAS-2022US017592

PATIENT
  Sex: Male

DRUGS (4)
  1. TACROLIMUS [Suspect]
     Active Substance: TACROLIMUS
     Indication: Renal transplant
     Route: 065
  2. TACROLIMUS [Suspect]
     Active Substance: TACROLIMUS
     Route: 065
  3. MYCOPHENOLATE MOFETIL [Concomitant]
     Active Substance: MYCOPHENOLATE MOFETIL
     Indication: Renal transplant
     Route: 065
  4. PREDNISONE [Concomitant]
     Active Substance: PREDNISONE
     Indication: Renal transplant
     Route: 065

REACTIONS (8)
  - Malacoplakia [Recovered/Resolved]
  - BK virus infection [Recovered/Resolved]
  - Escherichia urinary tract infection [Unknown]
  - Pneumocystis jirovecii pneumonia [Recovered/Resolved]
  - Herpes simplex [Unknown]
  - BK virus infection [Unknown]
  - Urinary tract infection [Unknown]
  - Cryptococcosis [Recovered/Resolved]

NARRATIVE: CASE EVENT DATE: 20180901
